FAERS Safety Report 5901243-8 (Version None)
Quarter: 2008Q3

REPORT INFORMATION
  Report Type: 
  Country: None (occurrence: None)
  Receive Date: 20080929
  Receipt Date: 20080703
  Transmission Date: 20090109
  Serious: No
  Sender: FDA-Public Use
  Company Number: US-BRISTOL-MYERS SQUIBB COMPANY-14248900

PATIENT
  Age: 57 Year
  Sex: Female
  Weight: 66 kg

DRUGS (3)
  1. ORENCIA [Suspect]
     Indication: ARTHRITIS
     Dosage: INUSION : 2
     Dates: start: 20080601
  2. PREDNISONE [Concomitant]
  3. PREMARIN [Concomitant]

REACTIONS (1)
  - OEDEMA PERIPHERAL [None]
